FAERS Safety Report 9270211 (Version 2)
Quarter: 2013Q2

REPORT INFORMATION
  Report Type: Spontaneous
  Country: FR (occurrence: FR)
  Receive Date: 20130503
  Receipt Date: 20130628
  Transmission Date: 20140414
  Serious: Yes (Life-Threatening, Hospitalization, Other)
  Sender: FDA-Public Use
  Company Number: FR-GLAXOSMITHKLINE-B0887970A

PATIENT
  Age: 83 Year
  Sex: Female
  Weight: 68 kg

DRUGS (2)
  1. ARIXTRA [Suspect]
     Indication: THROMBOSIS PROPHYLAXIS
     Dosage: 2.5MG PER DAY
     Dates: start: 20130412, end: 20130422
  2. LOW MOLECULAR WEIGHT HEPARIN [Concomitant]

REACTIONS (4)
  - Post procedural haemorrhage [Recovered/Resolved]
  - Drug administration error [Unknown]
  - Off label use [Unknown]
  - Anaemia [Unknown]
